FAERS Safety Report 20840833 (Version 1)
Quarter: 2022Q2

REPORT INFORMATION
  Report Type: Report from Study
  Country: CO (occurrence: None)
  Receive Date: 20220517
  Receipt Date: 20220517
  Transmission Date: 20220721
  Serious: Yes (Death, Other)
  Sender: FDA-Public Use
  Company Number: 2022A169873

PATIENT
  Age: 21482 Day
  Sex: Female
  Weight: 60 kg

DRUGS (4)
  1. LYNPARZA [Suspect]
     Active Substance: OLAPARIB
     Indication: Benign breast neoplasm
     Dosage: 2 TABLETS OF 150MG (TOTAL DOSE: 300MG) EVERY 12 HOURS
     Route: 048
     Dates: start: 20220115, end: 20220413
  2. LYNPARZA [Suspect]
     Active Substance: OLAPARIB
     Indication: Breast cancer female
     Dosage: 2 TABLETS OF 150MG (TOTAL DOSE: 300MG) EVERY 12 HOURS
     Route: 048
     Dates: start: 20220115, end: 20220413
  3. LYNPARZA [Suspect]
     Active Substance: OLAPARIB
     Indication: Benign breast neoplasm
     Route: 048
     Dates: start: 20220119, end: 20220407
  4. LYNPARZA [Suspect]
     Active Substance: OLAPARIB
     Indication: Breast cancer female
     Route: 048
     Dates: start: 20220119, end: 20220407

REACTIONS (1)
  - Death [Fatal]

NARRATIVE: CASE EVENT DATE: 20220426
